FAERS Safety Report 8816626 (Version 2)
Quarter: 2012Q4

REPORT INFORMATION
  Report Type: 
  Country: DE (occurrence: None)
  Receive Date: 20120928
  Receipt Date: 20121005
  Transmission Date: 20130627
  Serious: Yes (Life-Threatening)
  Sender: FDA-Public Use
  Company Number: AUR-APL-2012-04076

PATIENT
  Age: 73 Year
  Sex: Female
  Weight: 90 kg

DRUGS (10)
  1. METFORMIN (METFORMIN) [Suspect]
     Indication: TYPE II DIABETES MELLITUS
     Dosage: ONE DOSAGE PER DAY.
     Route: 048
     Dates: start: 2010
  2. ASS [Concomitant]
  3. FURORESE (FUROSEMIDE) [Concomitant]
  4. HCT (HYDROCHLOROTHIAZIDE) [Concomitant]
  5. CAPTOPRIL [Concomitant]
  6. GLIMEPIRIDE (GLIMEPIRIDE) [Concomitant]
  7. NEURO-RATIOPHARM (VITAMINES-B-LABAZ) [Concomitant]
  8. ZOPICLON (ZOPICLONE) [Concomitant]
  9. FENISTIL (DIMETINDENE MALEATE) [Concomitant]
  10. CEFUROXIME (CEFUROXIME) [Concomitant]

REACTIONS (5)
  - Lactic acidosis [None]
  - Haemoglobin decreased [None]
  - Red blood cell count decreased [None]
  - Blood potassium increased [None]
  - Renal failure acute [None]
